FAERS Safety Report 12114253 (Version 1)
Quarter: 2016Q1

REPORT INFORMATION
  Report Type: Spontaneous
  Country: DE (occurrence: DE)
  Receive Date: 20160225
  Receipt Date: 20160225
  Transmission Date: 20160526
  Serious: Yes (Other)
  Sender: FDA-Public Use
  Company Number: DE-MUNDIPHARMA DS AND PHARMACOVIGILANCE-DEU-2016-0017689

PATIENT
  Age: 75 Year
  Sex: Male

DRUGS (2)
  1. MST 10 MG MUNDIPHARMA [Suspect]
     Active Substance: MORPHINE SULFATE
     Indication: CHRONIC OBSTRUCTIVE PULMONARY DISEASE
     Dosage: 10 MG, BID
     Route: 048
     Dates: start: 20160201, end: 20160210
  2. MST 10 MG MUNDIPHARMA [Suspect]
     Active Substance: MORPHINE SULFATE
     Dosage: 10 MG, AM
     Route: 048

REACTIONS (3)
  - Off label use [Unknown]
  - Oxygen saturation decreased [Unknown]
  - Hypoaesthesia [Unknown]
